FAERS Safety Report 5515364-5 (Version None)
Quarter: 2007Q4

REPORT INFORMATION
  Report Type: 
  Country: None (occurrence: None)
  Receive Date: 20071109
  Receipt Date: 20071029
  Transmission Date: 20080405
  Serious: Yes (Other)
  Sender: FDA-Public Use
  Company Number: 2007US002686

PATIENT
  Age: 15 Year
  Sex: Female

DRUGS (5)
  1. MYCAMINE [Suspect]
     Indication: OFF LABEL USE
  2. AMBISOME [Suspect]
     Indication: ASPERGILLOSIS
  3. AMPHOTERICIN B [Concomitant]
  4. VORICONAZOLE (VORICONAZOLE) [Concomitant]
  5. CASPOFUNGIN (CASPOFUNGIN) [Concomitant]

REACTIONS (1)
  - DRUG RESISTANCE [None]
